FAERS Safety Report 21607546 (Version 1)
Quarter: 2022Q4

REPORT INFORMATION
  Report Type: Spontaneous
  Country: CA (occurrence: CA)
  Receive Date: 20221117
  Receipt Date: 20221117
  Transmission Date: 20230112
  Serious: Yes (Death, Hospitalization)
  Sender: FDA-Public Use
  Company Number: None

PATIENT
  Age: 72 Year
  Sex: Female

DRUGS (21)
  1. CARBOPLATIN [Suspect]
     Active Substance: CARBOPLATIN
     Indication: Metastasis
     Dosage: SOLUTION INTRAVENOUS, DOSE: 5 MG/ML, 1 EVERY 21 DAYS
     Route: 042
  2. PEMETREXED [Suspect]
     Active Substance: PEMETREXED
     Indication: Metastasis
     Dosage: POWDER FOR SOLUTION INTRAVENOUS, DOSE: 10.0 MG/ML, 1 EVERY 21 DAYS
     Route: 042
  3. AMLODIPINE [Concomitant]
     Active Substance: AMLODIPINE BESYLATE
  4. CALCIUM [Concomitant]
     Active Substance: CALCIUM
  5. DEXAMETHASONE [Concomitant]
     Active Substance: DEXAMETHASONE
  6. DEXLANSOPRAZOLE [Concomitant]
     Active Substance: DEXLANSOPRAZOLE
     Dosage: CAPSULE, DELAYED RELEASE
  7. ELIQUIS [Concomitant]
     Active Substance: APIXABAN
  8. EMEND [Concomitant]
     Active Substance: APREPITANT
  9. FOLIC ACID [Concomitant]
     Active Substance: FOLIC ACID
  10. GRANULOCYTE COLONY STIMULATING FACT [Concomitant]
  11. HYDROCHLOROTHIAZIDE [Concomitant]
     Active Substance: HYDROCHLOROTHIAZIDE
  12. HYDROMORPHONE [Concomitant]
     Active Substance: HYDROMORPHONE
  13. IRBESARTAN [Concomitant]
     Active Substance: IRBESARTAN
     Route: 065
  14. LORAZEPAM [Concomitant]
     Active Substance: LORAZEPAM
     Route: 065
  15. MAGNESIUM [Concomitant]
     Active Substance: MAGNESIUM
  16. OLANZAPINE [Concomitant]
     Active Substance: OLANZAPINE
  17. ONDANSETRON [Concomitant]
     Active Substance: ONDANSETRON
  18. POTASSIUM [Concomitant]
     Active Substance: POTASSIUM
  19. PROCHLORPERAZINE [Concomitant]
     Active Substance: PROCHLORPERAZINE
  20. VITAMIN B12 [Concomitant]
     Active Substance: CYANOCOBALAMIN
  21. VITAMIN D [Concomitant]
     Active Substance: VITAMIN D NOS

REACTIONS (4)
  - Clostridium difficile infection [Fatal]
  - Enteritis [Fatal]
  - Neurofibromatosis [Fatal]
  - Pancytopenia [Fatal]
